FAERS Safety Report 13677201 (Version 1)
Quarter: 2017Q2

REPORT INFORMATION
  Report Type: Spontaneous
  Country: US (occurrence: US)
  Receive Date: 20170622
  Receipt Date: 20170622
  Transmission Date: 20170830
  Serious: No
  Sender: FDA-Public Use
  Company Number: PHEH2017US013939

PATIENT

DRUGS (1)
  1. ESTRADIOL. [Suspect]
     Active Substance: ESTRADIOL
     Indication: PRODUCT USED FOR UNKNOWN INDICATION
     Dosage: 0.05 MG, QD
     Route: 065

REACTIONS (5)
  - Menstruation irregular [Unknown]
  - Product adhesion issue [Unknown]
  - Manufacturing issue [Unknown]
  - Drug ineffective [Unknown]
  - Hot flush [Unknown]
